FAERS Safety Report 18037325 (Version 1)
Quarter: 2020Q3

REPORT INFORMATION
  Report Type: Spontaneous
  Country: CN (occurrence: CN)
  Receive Date: 20200717
  Receipt Date: 20200717
  Transmission Date: 20201103
  Serious: Yes (Other)
  Sender: FDA-Public Use
  Company Number: CN-ROCHE-2642971

PATIENT
  Age: 66 Year
  Sex: Female
  Weight: 66 kg

DRUGS (11)
  1. HYDROTALCITE [Concomitant]
     Active Substance: HYDROTALCITE
     Route: 048
  2. HERCEPTIN [Suspect]
     Active Substance: TRASTUZUMAB
     Dosage: 2?6 CYCLES
     Route: 065
     Dates: start: 20191023
  3. TEGAFUR [Concomitant]
     Active Substance: TEGAFUR
     Dosage: DAY 1?14, 5 CYCLES
     Dates: start: 20200411
  4. TEGAFUR [Concomitant]
     Active Substance: TEGAFUR
     Dosage: 60 MG (MORNING), 80 MG (NIGHT); DAY 8?14, 6 CYCLES
     Dates: start: 20191023
  5. HERCEPTIN [Suspect]
     Active Substance: TRASTUZUMAB
     Indication: ADENOCARCINOMA GASTRIC
     Dosage: FIRST CYCLE (2?6 CYCLES)
     Route: 065
     Dates: start: 20191023
  6. HERCEPTIN [Suspect]
     Active Substance: TRASTUZUMAB
     Dosage: 6MG/KG, DAY1, 5 CYCLES
     Route: 065
     Dates: start: 20200411
  7. TEGAFUR [Concomitant]
     Active Substance: TEGAFUR
     Indication: ADENOCARCINOMA GASTRIC
     Dosage: DAY 1?7, 6 CYCLES
     Dates: start: 20191023
  8. NITRENDIPINE [Concomitant]
     Active Substance: NITRENDIPINE
     Indication: HYPERTENSION
  9. OMEPRAZOLE. [Concomitant]
     Active Substance: OMEPRAZOLE
     Route: 048
  10. OXALIPLATIN. [Concomitant]
     Active Substance: OXALIPLATIN
     Indication: ADENOCARCINOMA GASTRIC
     Dosage: DAY 1, 6 CYCLES
     Dates: start: 20191023
  11. SULFASALAZINE. [Concomitant]
     Active Substance: SULFASALAZINE
     Indication: COLITIS ULCERATIVE

REACTIONS (6)
  - Anaemia [Recovered/Resolved]
  - Granulocyte count decreased [Recovered/Resolved]
  - Platelet count decreased [Recovered/Resolved]
  - Mucosal inflammation [Recovered/Resolved]
  - Gastrointestinal disorder [Recovered/Resolved]
  - Asthenia [Recovered/Resolved]
